FAERS Safety Report 7068473-6 (Version None)
Quarter: 2010Q4

REPORT INFORMATION
  Report Type: 
  Country: None (occurrence: None)
  Receive Date: 20101028
  Receipt Date: 20101018
  Transmission Date: 20110411
  Serious: Yes (Other)
  Sender: FDA-Public Use
  Company Number: US-MYLANLABS-2010S1019303

PATIENT
  Sex: Female
  Weight: 47.63 kg

DRUGS (1)
  1. THIORIDAZINE HYDROCHLORIDE [Suspect]
     Indication: SCHIZOPHRENIA
     Dates: start: 19990101, end: 19990101

REACTIONS (1)
  - DYSPNOEA [None]
